FAERS Safety Report 8314035-X (Version None)
Quarter: 2012Q2

REPORT INFORMATION
  Report Type: 
  Country: None (occurrence: None)
  Receive Date: 20120426
  Receipt Date: 20120417
  Transmission Date: 20120825
  Serious: Yes (Death)
  Sender: FDA-Public Use
  Company Number: US-PFIZER INC-2012095155

PATIENT
  Age: 5 Year
  Sex: Female

DRUGS (3)
  1. DEXTROMETHORPHAN HYDROBROMIDE [Interacting]
     Dosage: UNK
  2. CETIRIZINE [Interacting]
     Dosage: UNK
  3. GUAIFENESIN [Suspect]

REACTIONS (6)
  - ACCIDENTAL OVERDOSE [None]
  - PAIN IN EXTREMITY [None]
  - DRUG INTERACTION [None]
  - MUSCLE SPASMS [None]
  - CIRCUMSTANCE OR INFORMATION CAPABLE OF LEADING TO MEDICATION ERROR [None]
  - TOXICITY TO VARIOUS AGENTS [None]
